FAERS Safety Report 15655626 (Version 3)
Quarter: 2019Q1

REPORT INFORMATION
  Report Type: Spontaneous
  Country: IT (occurrence: IT)
  Receive Date: 20181126
  Receipt Date: 20190305
  Transmission Date: 20190417
  Serious: Yes (Hospitalization)
  Sender: FDA-Public Use
  Company Number: IT-CELLTRION INC.-2018IT023992

PATIENT

DRUGS (3)
  1. INFLIXIMAB (UNKNOWN) [Suspect]
     Active Substance: INFLIXIMAB
     Indication: CROHN^S DISEASE
     Dosage: UNK (RESUMED) AFTER 2 YEARS OF MAINTENANCE REGIMEN, INFUSIONS EVERY 8 WEEKS.
     Route: 042
  2. INFLIXIMAB (UNKNOWN) [Suspect]
     Active Substance: INFLIXIMAB
     Dosage: 1 EVERY 8WEEKS (AFTER 2 YEARS OF MAINTENANCE REGIMEN, INFUSIONS EVERY 8 WEEKS)
  3. MERCAPTOPURINE. [Concomitant]
     Active Substance: MERCAPTOPURINE
     Indication: CROHN^S DISEASE
     Dosage: 1.5 MG/KG, DAILY
     Route: 065

REACTIONS (1)
  - SAPHO syndrome [Recovering/Resolving]
